APPROVED DRUG PRODUCT: SILDENAFIL CITRATE
Active Ingredient: SILDENAFIL CITRATE
Strength: EQ 10MG BASE/ML
Dosage Form/Route: FOR SUSPENSION;ORAL
Application: A211092 | Product #001 | TE Code: AB
Applicant: AMNEAL PHARMACEUTICALS OF NEW YORK LLC
Approved: Nov 27, 2019 | RLD: No | RS: No | Type: RX